FAERS Safety Report 7080779-3 (Version None)
Quarter: 2010Q4

REPORT INFORMATION
  Report Type: 
  Country: None (occurrence: None)
  Receive Date: 20101103
  Receipt Date: 20101025
  Transmission Date: 20110411
  Serious: Yes (Other)
  Sender: FDA-Public Use
  Company Number: JP-ASTRAZENECA-2010SE49558

PATIENT
  Age: 40 Year
  Sex: Female

DRUGS (2)
  1. XYLOCAINE VISCOUS [Suspect]
     Indication: LOCAL ANAESTHESIA
     Route: 065
  2. BUSCOPAN [Concomitant]
     Route: 065

REACTIONS (2)
  - AMNESIA [None]
  - MALAISE [None]
